FAERS Safety Report 9382361 (Version 1)
Quarter: 2013Q3

REPORT INFORMATION
  Report Type: Spontaneous
  Country: GE (occurrence: GE)
  Receive Date: 20130703
  Receipt Date: 20130703
  Transmission Date: 20140515
  Serious: Yes (Hospitalization)
  Sender: FDA-Public Use
  Company Number: GE-BRISTOL-MYERS SQUIBB COMPANY-19067982

PATIENT
  Age: 56 Year
  Sex: Male

DRUGS (6)
  1. EFAVIRENZ CAPS [Suspect]
     Indication: HIV INFECTION
     Route: 048
  2. REBETOL [Suspect]
     Indication: HIV INFECTION
     Dosage: REBETOL CAPSULE STRENGTH 200 MG
     Route: 048
     Dates: start: 20130517
  3. REBETOL [Suspect]
     Indication: HEPATITIS C
     Dosage: REBETOL CAPSULE STRENGTH 200 MG
     Route: 048
     Dates: start: 20130517
  4. PEGINTERFERON ALFA-2B [Suspect]
     Indication: HEPATITIS C
     Dosage: POWDER FOR INJECTION, 120
     Route: 058
     Dates: start: 20130517
  5. PEGINTERFERON ALFA-2B [Suspect]
     Indication: HIV INFECTION
     Dosage: POWDER FOR INJECTION, 120
     Route: 058
     Dates: start: 20130517
  6. TRUVADA [Suspect]
     Indication: HIV INFECTION
     Route: 065

REACTIONS (2)
  - Thrombocytosis [Recovered/Resolved]
  - Influenza like illness [Recovering/Resolving]
